FAERS Safety Report 7113437-7 (Version None)
Quarter: 2010Q4

REPORT INFORMATION
  Report Type: 
  Country: None (occurrence: None)
  Receive Date: 20101119
  Receipt Date: 20101109
  Transmission Date: 20110411
  Serious: Yes (Other)
  Sender: FDA-Public Use
  Company Number: AU-JNJFOC-20101104844

PATIENT
  Age: 35 Year
  Sex: Female

DRUGS (9)
  1. PROPULSID [Suspect]
     Indication: IMPAIRED GASTRIC EMPTYING
     Route: 065
  2. PROPULSID [Suspect]
     Route: 065
  3. PROPULSID [Suspect]
     Route: 065
  4. PROPULSID [Suspect]
     Route: 065
  5. ASPIRIN [Concomitant]
     Route: 065
  6. OLSALAZINE [Concomitant]
     Route: 065
  7. PANTOPRAZOLE [Concomitant]
     Route: 065
  8. AZATHIOPRINE [Concomitant]
     Route: 065
  9. NIZATIDINE [Concomitant]
     Route: 065

REACTIONS (2)
  - BLOOD POTASSIUM DECREASED [None]
  - CARDIAC DISORDER [None]
